FAERS Safety Report 8552049-5 (Version None)
Quarter: 2012Q3

REPORT INFORMATION
  Report Type: 
  Country: None (occurrence: None)
  Receive Date: 20120731
  Receipt Date: 20120721
  Transmission Date: 20120928
  Serious: Yes (Hospitalization, Other)
  Sender: FDA-Public Use
  Company Number: GB-PAR PHARMACEUTICAL, INC-2012SCPR004524

PATIENT

DRUGS (3)
  1. NABUMETONE [Suspect]
     Indication: PRODUCT USED FOR UNKNOWN INDICATION
     Dosage: UNK, UNKNOWN
     Route: 065
  2. CORTICOSTEROIDS [Suspect]
     Indication: PRODUCT USED FOR UNKNOWN INDICATION
     Dosage: UNK, UNKNOWN
     Route: 051
  3. QUININE SULFATE [Suspect]
     Indication: MUSCLE SPASMS
     Dosage: AS REQUIRED
     Route: 048

REACTIONS (3)
  - ACUTE PULMONARY OEDEMA [None]
  - PYREXIA [None]
  - HYPOTENSION [None]
